FAERS Safety Report 11809486 (Version 1)
Quarter: 2015Q4

REPORT INFORMATION
  Report Type: Report from Study
  Country: US (occurrence: US)
  Receive Date: 20151208
  Receipt Date: 20151208
  Transmission Date: 20160305
  Serious: Yes (Other)
  Sender: FDA-Public Use
  Company Number: US-ROCHE-1669994

PATIENT
  Sex: Female

DRUGS (4)
  1. BEVACIZUMAB [Suspect]
     Active Substance: BEVACIZUMAB
     Indication: BREAST CANCER
     Route: 065
  2. CYCLOPHOSPHAMIDE. [Suspect]
     Active Substance: CYCLOPHOSPHAMIDE
     Indication: BREAST CANCER
     Route: 065
  3. PACLITAXEL. [Suspect]
     Active Substance: PACLITAXEL
     Indication: BREAST CANCER
     Route: 065
  4. ADRIAMYCIN [Suspect]
     Active Substance: DOXORUBICIN HYDROCHLORIDE
     Indication: BREAST CANCER
     Route: 065

REACTIONS (12)
  - Peripheral sensory neuropathy [Unknown]
  - Myalgia [Unknown]
  - Hyperglycaemia [Unknown]
  - Alopecia [Unknown]
  - Diarrhoea [Unknown]
  - Dyspepsia [Unknown]
  - Lymphopenia [Unknown]
  - Nausea [Unknown]
  - Hypertension [Unknown]
  - Arthralgia [Unknown]
  - Haemoglobin abnormal [Unknown]
  - Fatigue [Unknown]
